FAERS Safety Report 10646794 (Version 1)
Quarter: 2014Q4

REPORT INFORMATION
  Report Type: Spontaneous
  Country: US (occurrence: US)
  Receive Date: 20141211
  Receipt Date: 20141211
  Transmission Date: 20150529
  Serious: Yes (Other)
  Sender: FDA-Public Use
  Company Number: US-TEVA-528166USA

PATIENT
  Age: 25 Year
  Sex: Female
  Weight: 79 kg

DRUGS (1)
  1. PARAGARD T380A [Suspect]
     Active Substance: COPPER
     Indication: CONTRACEPTION
     Route: 015
     Dates: start: 20140212

REACTIONS (4)
  - Device expulsion [Not Recovered/Not Resolved]
  - Uterine tenderness [Not Recovered/Not Resolved]
  - Endometritis [Not Recovered/Not Resolved]
  - Menstruation irregular [Not Recovered/Not Resolved]

NARRATIVE: CASE EVENT DATE: 201402
